FAERS Safety Report 24602713 (Version 1)
Quarter: 2024Q4

REPORT INFORMATION
  Report Type: Spontaneous
  Country: US (occurrence: US)
  Receive Date: 20241111
  Receipt Date: 20241111
  Transmission Date: 20250114
  Serious: Yes (Hospitalization, Other)
  Sender: MERCK
  Company Number: US-009507513-2411USA002126

PATIENT
  Sex: Female

DRUGS (11)
  1. KEYTRUDA [Suspect]
     Active Substance: PEMBROLIZUMAB
     Indication: Acral lentiginous melanoma
     Dosage: UNK
     Route: 042
     Dates: start: 20240509
  2. BUPROPION [Concomitant]
     Active Substance: BUPROPION
     Dosage: 150 EXTENDED RELEASE
  3. SYNTHROID [Concomitant]
     Active Substance: LEVOTHYROXINE SODIUM
     Dosage: 75 MICROGRAM
  4. HYDROCHLOROTHIAZIDE [Concomitant]
     Active Substance: HYDROCHLOROTHIAZIDE
     Dosage: 10 MILLIGRAM
  5. LEXAPRO [Concomitant]
     Active Substance: ESCITALOPRAM OXALATE
     Dosage: 10 MILLIGRAM
  6. LISINOPRIL [Concomitant]
     Active Substance: LISINOPRIL
     Dosage: 20 MILLIGRAM
  7. ATORVASTATIN [Concomitant]
     Active Substance: ATORVASTATIN
     Dosage: 20 MILLIGRAM, BIW
  8. VITAMIN B [Concomitant]
     Active Substance: VITAMIN B
     Dosage: UNK
  9. VITAMIN D NOS [Concomitant]
     Active Substance: CHOLECALCIFEROL\ERGOCALCIFEROL
     Dosage: UNK
  10. POTASSIUM [Concomitant]
     Active Substance: POTASSIUM
     Dosage: UNK
  11. VITAMINS NOS [Concomitant]
     Active Substance: VITAMINS
     Dosage: UNK

REACTIONS (9)
  - Cancer surgery [Unknown]
  - Deafness unilateral [Recovered/Resolved]
  - Pain in jaw [Recovered/Resolved]
  - Pain [Recovered/Resolved]
  - Alopecia [Not Recovered/Not Resolved]
  - Dermatitis [Recovered/Resolved]
  - Arthralgia [Recovered/Resolved]
  - Pruritus [Not Recovered/Not Resolved]
  - Vitiligo [Not Recovered/Not Resolved]

NARRATIVE: CASE EVENT DATE: 20240101
